FAERS Safety Report 8503295 (Version 4)
Quarter: 2012Q4

REPORT INFORMATION
  Report Type: 
  Country: SG (occurrence: SG)
  Receive Date: 20120411
  Receipt Date: 20120927
  Transmission Date: 20130627
  Serious: Yes (Hospitalization)
  Sender: FDA-Public Use
  Company Number: PHHY2012SG030126

PATIENT
  Age: 53 Year
  Sex: Male

DRUGS (3)
  1. GLIVEC [Suspect]
     Indication: CHRONIC MYELOID LEUKAEMIA
     Dosage: 400 mg, Daily
     Dates: start: 20110622
  2. IBUPROFEN [Concomitant]
     Dosage: 400 mg
  3. FAMOTIDINE [Concomitant]
     Dosage: 20 mg, BID

REACTIONS (9)
  - Food poisoning [Recovered/Resolved]
  - Gastroenteritis viral [Recovered/Resolved]
  - Therapeutic response decreased [Unknown]
  - Nausea [Unknown]
  - Product quality issue [None]
  - Adverse drug reaction [None]
  - Drug ineffective [None]
  - Chronic myeloid leukaemia [None]
  - Malignant neoplasm progression [None]
